FAERS Safety Report 25576624 (Version 3)
Quarter: 2025Q3

REPORT INFORMATION
  Report Type: Spontaneous
  Country: AU (occurrence: AU)
  Receive Date: 20250718
  Receipt Date: 20250821
  Transmission Date: 20251021
  Serious: Yes (Other)
  Sender: ROCHE
  Company Number: AU-ROCHE-10000333768

PATIENT
  Age: 75 Year
  Sex: Male
  Weight: 80 kg

DRUGS (4)
  1. HEMLIBRA [Suspect]
     Active Substance: EMICIZUMAB-KXWH
     Indication: Factor VIII deficiency
     Dosage: DOSE 240
     Route: 058
     Dates: start: 20170227
  2. Attacad plus [Concomitant]
     Route: 048
  3. CRESTOR [Concomitant]
     Active Substance: ROSUVASTATIN CALCIUM
     Route: 048
  4. ASPIRIN [Concomitant]
     Active Substance: ASPIRIN

REACTIONS (3)
  - Coronary artery occlusion [Recovering/Resolving]
  - Surgery [Unknown]
  - Blood cholesterol increased [Unknown]

NARRATIVE: CASE EVENT DATE: 20250703
